FAERS Safety Report 23603374 (Version 3)
Quarter: 2024Q1

REPORT INFORMATION
  Report Type: Spontaneous
  Country: US (occurrence: None)
  Receive Date: 20240307
  Receipt Date: 20240319
  Transmission Date: 20240410
  Serious: Yes (Other)
  Sender: FDA-Public Use
  Company Number: US-ROCHE-3517242

PATIENT
  Age: 82 Year
  Sex: Female
  Weight: 61.29 kg

DRUGS (9)
  1. VABYSMO [Suspect]
     Active Substance: FARICIMAB\FARICIMAB-SVOA
     Indication: Neovascular age-related macular degeneration
     Route: 050
     Dates: start: 20221017, end: 20240222
  2. PREDNISONE [Concomitant]
     Active Substance: PREDNISONE
     Dates: start: 20240226
  3. VANCOMYCIN [Concomitant]
     Active Substance: VANCOMYCIN
     Indication: Endophthalmitis
     Dates: start: 20240226
  4. GATIFLOXACIN [Concomitant]
     Active Substance: GATIFLOXACIN
     Route: 047
     Dates: start: 20240226
  5. CEFTAZIDIME [Concomitant]
     Active Substance: CEFTAZIDIME
     Indication: Endophthalmitis
  6. ATROPINE [Concomitant]
     Active Substance: ATROPINE\ATROPINE SULFATE
     Route: 047
     Dates: start: 20240226
  7. DUREZOL [Concomitant]
     Active Substance: DIFLUPREDNATE
     Route: 047
     Dates: start: 20240226
  8. BETADINE [Concomitant]
     Active Substance: POVIDONE-IODINE
  9. OFLOXACIN [Concomitant]
     Active Substance: OFLOXACIN

REACTIONS (6)
  - Blindness [Unknown]
  - Retinal occlusive vasculitis [Unknown]
  - Vasculitis [Not Recovered/Not Resolved]
  - Ocular discomfort [Unknown]
  - Eye pain [Unknown]
  - Off label use [Unknown]

NARRATIVE: CASE EVENT DATE: 20240226
